FAERS Safety Report 4867867-4 (Version None)
Quarter: 2005Q4

REPORT INFORMATION
  Report Type: 
  Country: None (occurrence: None)
  Receive Date: 20051227
  Receipt Date: 20051212
  Transmission Date: 20060501
  Serious: Yes (Other)
  Sender: FDA-Public Use
  Company Number: DE-JNJFOC-20051203927

PATIENT
  Weight: 1.5 kg

DRUGS (4)
  1. RISPERDAL [Suspect]
     Indication: BORDERLINE PERSONALITY DISORDER
     Dosage: 6 MG, TRANSPLACENTAL
     Route: 064
     Dates: start: 20050501
  2. CARBAMAZEPINE [Suspect]
     Indication: BORDERLINE PERSONALITY DISORDER
     Dosage: 1000 MG, TRANSPLACENTAL
     Route: 064
  3. MELPERONE (MELPERONE) [Suspect]
     Indication: BORDERLINE PERSONALITY DISORDER
     Dosage: TRANSPLACENTAL
     Route: 064
  4. FEMIBION (ALL OTHER THERAPEUTIC PRODUCTS) [Concomitant]

REACTIONS (5)
  - BLOOD PH DECREASED [None]
  - CAESAREAN SECTION [None]
  - DRUG EXPOSURE DURING PREGNANCY [None]
  - NEONATAL DISORDER [None]
  - PREMATURE BABY [None]
